FAERS Safety Report 11988612 (Version 1)
Quarter: 2016Q1

REPORT INFORMATION
  Report Type: Spontaneous
  Country: DE (occurrence: DE)
  Receive Date: 20160202
  Receipt Date: 20160202
  Transmission Date: 20160526
  Serious: Yes (Hospitalization, Congenital Anomaly, Other)
  Sender: FDA-Public Use
  Company Number: DE-SA-2016SA014342

PATIENT
  Age: 1 Day
  Sex: Male
  Weight: 1.4 kg

DRUGS (2)
  1. TRENTAL [Suspect]
     Active Substance: PENTOXIFYLLINE
     Indication: COAGULOPATHY
     Dosage: 400 MG (2 IN A DAY)
     Route: 064
  2. VENLAFAXINE [Suspect]
     Active Substance: VENLAFAXINE HYDROCHLORIDE
     Indication: DEPRESSION
     Dosage: 0. - 32.5. GESTATIONAL WEEK
     Route: 064
     Dates: start: 20141023, end: 20150609

REACTIONS (5)
  - Atrial septal defect [Not Recovered/Not Resolved]
  - Respiratory disorder neonatal [Recovered/Resolved]
  - Infantile apnoea [Recovered/Resolved]
  - Exposure during pregnancy [Unknown]
  - Bradycardia neonatal [Recovered/Resolved]

NARRATIVE: CASE EVENT DATE: 20150609
